FAERS Safety Report 18501061 (Version 3)
Quarter: 2020Q4

REPORT INFORMATION
  Report Type: Spontaneous
  Country: CA (occurrence: CA)
  Receive Date: 20201113
  Receipt Date: 20201218
  Transmission Date: 20210114
  Serious: Yes (Death, Hospitalization)
  Sender: FDA-Public Use
  Company Number: CA-PFIZER INC-2020446918

PATIENT
  Age: 52 Year
  Sex: Male
  Weight: 54.42 kg

DRUGS (1)
  1. FRAGMIN [Suspect]
     Active Substance: DALTEPARIN SODIUM
     Indication: THROMBOSIS
     Dosage: 1 DF (1 SYRINGE), DAILY
     Route: 058
     Dates: start: 20201019, end: 20201023

REACTIONS (3)
  - Death [Fatal]
  - Wrong product administered [Unknown]
  - Drug intolerance [Unknown]

NARRATIVE: CASE EVENT DATE: 20201019
